FAERS Safety Report 21697754 (Version 1)
Quarter: 2022Q4

REPORT INFORMATION
  Report Type: Spontaneous
  Country: CN (occurrence: CN)
  Receive Date: 20221208
  Receipt Date: 20221208
  Transmission Date: 20230112
  Serious: Yes (Other)
  Sender: FDA-Public Use
  Company Number: CN-009507513-2212CHN001585

PATIENT
  Age: 95 Year
  Sex: Female

DRUGS (1)
  1. CILASTATIN SODIUM\IMIPENEM [Suspect]
     Active Substance: CILASTATIN SODIUM\IMIPENEM
     Indication: Pneumonia
     Dosage: 2G, Q8H
     Route: 041
     Dates: start: 20221116, end: 20221129

REACTIONS (3)
  - Epilepsy [Recovering/Resolving]
  - Muscle twitching [Recovering/Resolving]
  - Overdose [Unknown]

NARRATIVE: CASE EVENT DATE: 20221116
